FAERS Safety Report 20158837 (Version 1)
Quarter: 2021Q4

REPORT INFORMATION
  Report Type: Spontaneous
  Country: US (occurrence: US)
  Receive Date: 20211208
  Receipt Date: 20211208
  Transmission Date: 20220303
  Serious: No
  Sender: FDA-Public Use
  Company Number: US-Santen Inc-2021-USA-011220

PATIENT

DRUGS (1)
  1. ZERVIATE [Suspect]
     Active Substance: CETIRIZINE HYDROCHLORIDE
     Indication: Product used for unknown indication
     Route: 047

REACTIONS (1)
  - Epistaxis [Unknown]
